FAERS Safety Report 4403406-X (Version None)
Quarter: 2004Q3

REPORT INFORMATION
  Report Type: 
  Country: None (occurrence: None)
  Receive Date: 20040715
  Receipt Date: 20040707
  Transmission Date: 20050211
  Serious: Yes (Hospitalization)
  Sender: FDA-Public Use
  Company Number: 163-20785-04060687(1)

PATIENT
  Age: 61 Year
  Sex: Female
  Weight: 47.3 kg

DRUGS (13)
  1. THALOMID [Suspect]
     Indication: METASTATIC MALIGNANT MELANOMA
     Dosage: 200 MG, DAILY, ORAL; SEE IMAGE
     Route: 048
     Dates: start: 20040405
  2. TEMODAR [Suspect]
     Indication: CHEMOTHERAPY
  3. CISPLATIN [Suspect]
     Indication: CHEMOTHERAPY
     Dosage: DAILY X 3
     Dates: start: 20040504, end: 20040506
  4. VINBLASTINE SULFATE [Suspect]
     Indication: CHEMOTHERAPY
     Dosage: DAILY X3
     Dates: start: 20040504, end: 20040506
  5. RADIATION THERAPY (UNKNOWN) [Suspect]
     Indication: METASTATIC MALIGNANT MELANOMA
     Dosage: 2.5 GY QD ON DAYS 1-5 QWEEK
     Dates: start: 20040405, end: 20040423
  6. AMBIEN [Concomitant]
  7. COX 2 INHIBITOR [Concomitant]
  8. DECADRON [Concomitant]
  9. DOC-Q LACE (DOCUSATE) [Concomitant]
  10. PREMPRO 14/14 [Concomitant]
  11. PROTONIX [Concomitant]
  12. SENOKOT [Concomitant]
  13. TYLENOL W/ CODEINE NO. 3 [Concomitant]

REACTIONS (17)
  - ABDOMINAL MASS [None]
  - ANAEMIA [None]
  - ATAXIA [None]
  - BLOOD ALBUMIN DECREASED [None]
  - BLOOD POTASSIUM DECREASED [None]
  - DEHYDRATION [None]
  - DIZZINESS [None]
  - FALL [None]
  - GAIT DISTURBANCE [None]
  - HYPONATRAEMIA [None]
  - HYPOTENSION [None]
  - ILEUS [None]
  - MALIGNANT MELANOMA [None]
  - MALIGNANT NEOPLASM PROGRESSION [None]
  - MALNUTRITION [None]
  - PROTEIN TOTAL DECREASED [None]
  - RETROPERITONEAL NEOPLASM [None]
